FAERS Safety Report 8327888-6 (Version None)
Quarter: 2012Q2

REPORT INFORMATION
  Report Type: 
  Country: None (occurrence: None)
  Receive Date: 20120502
  Receipt Date: 20120425
  Transmission Date: 20120825
  Serious: Yes (Other)
  Sender: FDA-Public Use
  Company Number: JP-EISAI INC-E2090-02035-SPO-JP

PATIENT
  Sex: Female

DRUGS (6)
  1. DEPAKENE [Suspect]
     Indication: CONVULSION
     Route: 048
     Dates: start: 19930518
  2. PHENOBARBITAL TAB [Concomitant]
     Route: 048
     Dates: start: 19941025, end: 19971202
  3. PHENYTOIN SODIUM CAP [Suspect]
     Indication: CONVULSION
     Route: 048
     Dates: start: 19930116, end: 20090930
  4. PHENOBARBITAL TAB [Concomitant]
     Indication: CONVULSION
     Route: 048
     Dates: start: 19921005, end: 19930518
  5. ZONISAMIDE [Suspect]
     Indication: CONVULSION
     Route: 048
     Dates: start: 19960224
  6. PHENYTOIN SODIUM CAP [Suspect]
     Dosage: DOSE REDUCED, THEN DISCONTINUED.

REACTIONS (2)
  - FAILURE TO THRIVE [None]
  - HYPOTHYROIDISM [None]
